FAERS Safety Report 5779712-3 (Version None)
Quarter: 2008Q2

REPORT INFORMATION
  Report Type: 
  Country: None (occurrence: None)
  Receive Date: 20080617
  Receipt Date: 20080602
  Transmission Date: 20081010
  Serious: Yes (Life-Threatening)
  Sender: FDA-Public Use
  Company Number: 08H-122-0314401-00

PATIENT
  Age: 88 Year
  Sex: Male

DRUGS (5)
  1. PENTOTHAL [Suspect]
     Indication: ENDOTRACHEAL INTUBATION
     Dosage: 350 MG, 1 IN 1 D, PARENTERAL
     Route: 051
     Dates: start: 20080523, end: 20080523
  2. NIMBEX(CISATRACURIM BESILATE) [Suspect]
     Indication: INDUCTION OF ANAESTHESIA
     Dosage: 6 MG, 1 IN 1 D, PARENTERAL
     Route: 051
     Dates: start: 20080523, end: 20080523
  3. CURACIT (SUXAMETHONIUM CHLORIDE) [Suspect]
     Indication: ENDOTRACHEAL INTUBATION
     Dosage: 100 MG, 1 IN 1D, INTRAVENOUS (NOT OTHERWISE SPECIFIED)
     Route: 042
     Dates: start: 20080523, end: 20080523
  4. FENTANYL [Suspect]
     Indication: PAIN
     Dosage: .1 MG AND .15 MG, PARENTERAL
     Route: 051
     Dates: start: 20080523, end: 20080523
  5. SEVOFLURAN BAXTER (SEVOFLURANE) [Concomitant]

REACTIONS (4)
  - BRONCHOSPASM [None]
  - HYPOTENSION [None]
  - HYPOXIA [None]
  - TACHYCARDIA [None]
